FAERS Safety Report 11873273 (Version 1)
Quarter: 2015Q4

REPORT INFORMATION
  Report Type: Spontaneous
  Country: US (occurrence: US)
  Receive Date: 20151228
  Receipt Date: 20151228
  Transmission Date: 20160305
  Serious: No
  Sender: FDA-Public Use
  Company Number: US-ALK ABELLO INC-1045948

PATIENT
  Age: 44 Year
  Sex: Male

DRUGS (29)
  1. AMERICAN ELM POLLEN [Suspect]
     Active Substance: ULMUS AMERICANA POLLEN
     Dates: start: 20120622
  2. EASTERN COTTONWOOD POLLEN [Suspect]
     Active Substance: POPULUS DELTOIDES POLLEN
     Dates: start: 20120622
  3. BERMUDA GRASS, STANDARDIZED [Suspect]
     Active Substance: CYNODON DACTYLON POLLEN
     Dates: start: 20120622
  4. BAHIA GRASS POLLEN [Suspect]
     Active Substance: PASPALUM NOTATUM POLLEN
     Dates: start: 20120622
  5. STANDARDIZED GRASS POLLEN, TIMOTHY [Suspect]
     Active Substance: PHLEUM PRATENSE POLLEN
     Dates: start: 20120622
  6. JOHNSON GRASS POLLEN [Suspect]
     Active Substance: SORGHUM HALEPENSE POLLEN
     Dates: start: 20120622
  7. LAMBS QUARTERS POLLEN [Suspect]
     Active Substance: CHENOPODIUM ALBUM POLLEN
     Dates: start: 20120622
  8. ENGLISH PLANTAIN POLLEN [Suspect]
     Active Substance: PLANTAGO LANCEOLATA POLLEN
     Dates: start: 20120622
  9. DOCK/SORREL MIXTURE [Suspect]
     Active Substance: RUMEX ACETOSELLA POLLEN\RUMEX CRISPUS POLLEN
     Dates: start: 20120622
  10. MAPLE POLLEN MIXTURE [Suspect]
     Active Substance: ACER RUBRUM POLLEN\ACER SACCHARINUM POLLEN\ACER SACCHARUM POLLEN
     Dates: start: 20120622
  11. PENICILLIUM NOTATUM [Suspect]
     Active Substance: PENICILLIUM CHRYSOGENUM VAR. CHRYSOGENUM
     Dates: start: 20120622
  12. OAK MIXTURE [Suspect]
     Active Substance: QUERCUS ALBA POLLEN\QUERCUS MACROCARPA POLLEN\QUERCUS MUEHLENBERGII POLLEN\QUERCUS PALUSTRIS POLLEN\QUERCUS RUBRA POLLEN\QUERCUS STELLATA POLLEN\QUERCUS VELUTINA POLLEN\QUERCUS VIRGINIANA POLLEN
     Dates: start: 20120622
  13. DOG HAIR [Suspect]
     Active Substance: CANIS LUPUS FAMILIARIS HAIR
     Dates: start: 20120622
  14. FEATHER MIX, CHICKEN/DUCK/GOOSE [Suspect]
     Active Substance: ANAS PLATYRHYNCHOS FEATHER\ANSER ANSER FEATHER\GALLUS GALLUS FEATHER
     Dates: start: 20120622
  15. COCKLEBUR POLLEN [Suspect]
     Active Substance: XANTHIUM STRUMARIUM POLLEN
     Dates: start: 20120622
  16. HORMODENDRUM [Suspect]
     Active Substance: CLADOSPORIUM CLADOSPORIOIDES
     Dates: start: 20120622
  17. RAGWEED MIXTURE [Suspect]
     Active Substance: AMBROSIA ARTEMISIIFOLIA POLLEN\AMBROSIA BIDENTATA POLLEN\AMBROSIA PSILOSTACHYA POLLEN\AMBROSIA TRIFIDA POLLEN
     Dates: start: 20120622
  18. ALTERNARIA TENUIS [Suspect]
     Active Substance: ALTERNARIA ALTERNATA
     Dates: start: 20120622
  19. EPICOCCUM NIGRUM. [Suspect]
     Active Substance: EPICOCCUM NIGRUM
     Dates: start: 20120622
  20. ASPERGILLUS FUMIGATUS. [Suspect]
     Active Substance: ASPERGILLUS FUMIGATUS
     Dates: start: 20120622
  21. WHITE ASH POLLEN [Suspect]
     Active Substance: FRAXINUS AMERICANA POLLEN
     Dates: start: 20120622
  22. HELMINTHOSPORIUM [Suspect]
     Active Substance: COCHLIOBOLUS SATIVUS
     Dates: start: 20120622
  23. CANDIDA [Suspect]
     Active Substance: CANDIDA ALBICANS
     Dates: start: 20120622
  24. MEADOW FESCUE GRASS, STANDARDIZED [Suspect]
     Active Substance: FESTUCA PRATENSIS POLLEN
     Dates: start: 20120622
  25. POLLENS - WEEDS, CARELESS/PIGWEED MIX [Suspect]
     Active Substance: AMARANTHUS PALMERI POLLEN\AMARANTHUS RETROFLEXUS POLLEN
     Dates: start: 20120622
  26. ZYRTEC [Concomitant]
     Active Substance: CETIRIZINE HYDROCHLORIDE
     Route: 048
  27. PECAN POLLEN [Suspect]
     Active Substance: CARYA ILLINOINENSIS POLLEN
     Dates: start: 20120622
  28. POLLENS - TREES, PINE MIX [Suspect]
     Active Substance: PINUS CONTORTA POLLEN\PINUS PONDEROSA POLLEN
     Dates: start: 20120622
  29. CAT PELT, STANDARDIZED [Suspect]
     Active Substance: FELIS CATUS SKIN
     Dates: start: 20120622

REACTIONS (4)
  - Erythema [Recovered/Resolved]
  - Swelling [Recovered/Resolved]
  - Pruritus [Recovered/Resolved]
  - Local reaction [Recovered/Resolved]

NARRATIVE: CASE EVENT DATE: 20150403
